FAERS Safety Report 8132811-3 (Version None)
Quarter: 2012Q1

REPORT INFORMATION
  Report Type: 
  Country: None (occurrence: None)
  Receive Date: 20120213
  Receipt Date: 20120207
  Transmission Date: 20120608
  Serious: Yes (Hospitalization)
  Sender: FDA-Public Use
  Company Number: US-MERCK-1108USA01237

PATIENT
  Age: 58 Year
  Sex: Female

DRUGS (1)
  1. FOSAMAX [Suspect]
     Indication: OSTEOPOROSIS
     Route: 048
     Dates: start: 19950101

REACTIONS (17)
  - OSTEOPENIA [None]
  - OSTEOARTHRITIS [None]
  - FEMUR FRACTURE [None]
  - BRONCHOSPASM [None]
  - LIPIDS INCREASED [None]
  - ANXIETY [None]
  - RESTLESS LEGS SYNDROME [None]
  - FALL [None]
  - NASAL DISORDER [None]
  - LOWER LIMB FRACTURE [None]
  - BREAST PAIN [None]
  - VITAMIN D DEFICIENCY [None]
  - FATIGUE [None]
  - CHRONIC OBSTRUCTIVE PULMONARY DISEASE [None]
  - GASTROOESOPHAGEAL REFLUX DISEASE [None]
  - HYPERTENSION [None]
  - DEPRESSION [None]
